FAERS Safety Report 6590137-3 (Version None)
Quarter: 2010Q1

REPORT INFORMATION
  Report Type: 
  Country: None (occurrence: None)
  Receive Date: 20100219
  Receipt Date: 20100212
  Transmission Date: 20100710
  Serious: Yes (Other)
  Sender: FDA-Public Use
  Company Number: ES-ASTRAZENECA-2010SE06359

PATIENT
  Age: 57 Year
  Sex: Male

DRUGS (7)
  1. ATENOLOL [Suspect]
     Indication: ATRIAL FIBRILLATION
     Route: 048
     Dates: start: 20090602, end: 20091123
  2. SEROQUEL [Interacting]
     Indication: SCHIZOPHRENIA
     Route: 048
     Dates: start: 20091120
  3. DIAZEPAM [Concomitant]
     Dates: start: 20091117
  4. ADIRO [Concomitant]
     Indication: ATRIAL FIBRILLATION
     Dates: start: 20090602
  5. AKINETON [Concomitant]
     Dates: start: 20091117
  6. INVEGA [Concomitant]
     Indication: SCHIZOPHRENIA
     Dates: start: 20091117
  7. SIMVASTATIN [Concomitant]
     Indication: HYPERCHOLESTEROLAEMIA
     Dates: start: 20090722

REACTIONS (3)
  - BRADYCARDIA [None]
  - DRUG INTERACTION [None]
  - URINARY RETENTION [None]
